FAERS Safety Report 5876047-5 (Version None)
Quarter: 2008Q3

REPORT INFORMATION
  Report Type: 
  Country: None (occurrence: None)
  Receive Date: 20080908
  Receipt Date: 20080908
  Transmission Date: 20090109
  Serious: Yes (Disabling)
  Sender: FDA-Public Use
  Company Number: None

PATIENT
  Age: 78 Year
  Sex: Female
  Weight: 58.0604 kg

DRUGS (1)
  1. MACROBID [Suspect]
     Indication: CYSTITIS
     Dosage: 1 CAP 2 PER DAY PO
     Route: 048
     Dates: start: 20080818, end: 20080821

REACTIONS (2)
  - PRURITUS [None]
  - RASH ERYTHEMATOUS [None]
